FAERS Safety Report 4595063-7 (Version None)
Quarter: 2005Q1

REPORT INFORMATION
  Report Type: 
  Country: None (occurrence: None)
  Receive Date: 20050223
  Receipt Date: 20050223
  Transmission Date: 20050727
  Serious: Yes (Other)
  Sender: FDA-Public Use
  Company Number: GBWYE434617FEB05

PATIENT
  Sex: Male

DRUGS (3)
  1. EFFEXOR XR [Suspect]
     Dosage: SEE IMAGE
     Dates: end: 20050201
  2. EFFEXOR XR [Suspect]
     Dosage: SEE IMAGE
  3. EFFEXOR XR [Suspect]
     Dosage: SEE IMAGE
     Dates: start: 20050201

REACTIONS (5)
  - DISORIENTATION [None]
  - DIZZINESS [None]
  - DRUG WITHDRAWAL SYNDROME [None]
  - HYPERHIDROSIS [None]
  - PALPITATIONS [None]
